FAERS Safety Report 8683265 (Version 3)
Quarter: 2013Q4

REPORT INFORMATION
  Report Type: Spontaneous
  Country: US (occurrence: US)
  Receive Date: 20120726
  Receipt Date: 20131101
  Transmission Date: 20140711
  Serious: No
  Sender: FDA-Public Use
  Company Number: US-009507513-1207USA008978

PATIENT
  Sex: Female

DRUGS (2)
  1. NUVARING [Suspect]
     Indication: CONTRACEPTION
     Route: 067
  2. VYVANSE [Concomitant]

REACTIONS (3)
  - Menstrual disorder [Recovered/Resolved]
  - Incorrect product storage [Unknown]
  - Drug ineffective [Unknown]
